FAERS Safety Report 6479873-7 (Version None)
Quarter: 2009Q4

REPORT INFORMATION
  Report Type: 
  Country: None (occurrence: None)
  Receive Date: 20091208
  Receipt Date: 20091130
  Transmission Date: 20100525
  Serious: Yes (Hospitalization)
  Sender: FDA-Public Use
  Company Number: FR-ROCHE-672143

PATIENT
  Sex: Male

DRUGS (10)
  1. XELODA [Suspect]
     Indication: COLON CANCER
     Route: 048
     Dates: end: 20090910
  2. GUTRON [Suspect]
     Indication: DRUG USE FOR UNKNOWN INDICATION
     Route: 048
     Dates: end: 20090910
  3. GUTRON [Suspect]
     Route: 048
     Dates: start: 20090914
  4. EQUANIL [Concomitant]
     Route: 048
  5. DEPAMIDE [Concomitant]
     Dosage: DOSE REPORTED AS: 1 DOSE.
     Route: 048
  6. SINEMET [Concomitant]
     Dosage: STRENGTH: 100 MG/10 MG, DOSE: 5 DOSES.
     Route: 048
  7. RIVOTRIL [Concomitant]
     Dosage: STRENGTH: 2.5 MG/ML.
     Route: 048
  8. KARDEGIC [Concomitant]
     Dosage: DOSE: 1 DOSE.
     Route: 048
  9. EBIXA [Concomitant]
     Dosage: TAKEN 2 DOSES DAILY.
     Route: 048
  10. NEXIUM [Concomitant]
     Dosage: TAKEN ONE DOSE DAILY.
     Route: 048

REACTIONS (3)
  - ABDOMINAL PAIN [None]
  - ENTEROCOLITIS BACTERIAL [None]
  - FAECALOMA [None]
